FAERS Safety Report 25306283 (Version 1)
Quarter: 2025Q2

REPORT INFORMATION
  Report Type: Spontaneous
  Country: US (occurrence: US)
  Receive Date: 20250513
  Receipt Date: 20250513
  Transmission Date: 20250716
  Serious: No
  Sender: UCB
  Company Number: US-UCBSA-2025006154

PATIENT
  Sex: Female
  Weight: 82.55 kg

DRUGS (1)
  1. CIMZIA [Suspect]
     Active Substance: CERTOLIZUMAB PEGOL
     Indication: Rheumatoid arthritis
     Dosage: 400 MILLIGRAM, EV 4 WEEKS
     Route: 058
     Dates: start: 2019

REACTIONS (5)
  - Nasopharyngitis [Unknown]
  - Arthralgia [Unknown]
  - Fungal skin infection [Unknown]
  - Intentional dose omission [Unknown]
  - Treatment noncompliance [Unknown]
